FAERS Safety Report 9167181 (Version 1)
Quarter: 2013Q1

REPORT INFORMATION
  Report Type: Spontaneous
  Country: DE (occurrence: DE)
  Receive Date: 20130318
  Receipt Date: 20130318
  Transmission Date: 20140127
  Serious: Yes (Hospitalization)
  Sender: FDA-Public Use
  Company Number: DE-BIOGENIDEC-2013BI023954

PATIENT
  Age: 55 Year
  Sex: Female
  Weight: 57 kg

DRUGS (2)
  1. AVONEX [Suspect]
     Indication: MULTIPLE SCLEROSIS
     Route: 030
     Dates: start: 20091201
  2. LYRICA [Concomitant]
     Indication: SENSORY DISTURBANCE
     Dates: start: 200902

REACTIONS (3)
  - Herpes virus infection [Not Recovered/Not Resolved]
  - Multiple sclerosis relapse [Recovered/Resolved]
  - H1N1 influenza [Recovered/Resolved]
